FAERS Safety Report 8013900-0 (Version None)
Quarter: 2011Q4

REPORT INFORMATION
  Report Type: 
  Country: None (occurrence: None)
  Receive Date: 20111229
  Receipt Date: 20111221
  Transmission Date: 20120403
  Serious: Yes (Other)
  Sender: FDA-Public Use
  Company Number: IL-ROCHE-1025699

PATIENT
  Age: 33 Year
  Sex: Female

DRUGS (4)
  1. LUCENTIS [Suspect]
     Route: 050
     Dates: start: 20111108
  2. LUCENTIS [Suspect]
     Route: 050
     Dates: start: 20110808
  3. LUCENTIS [Suspect]
     Route: 050
     Dates: start: 20111220
  4. LUCENTIS [Suspect]
     Indication: RETINAL VEIN OCCLUSION
     Route: 050
     Dates: start: 20110621

REACTIONS (2)
  - MATERNAL EXPOSURE DURING PREGNANCY [None]
  - ABORTION [None]
